FAERS Safety Report 25944448 (Version 1)
Quarter: 2025Q4

REPORT INFORMATION
  Report Type: Report from Study
  Country: CA (occurrence: CA)
  Receive Date: 20251021
  Receipt Date: 20251021
  Transmission Date: 20260118
  Serious: Yes (Death, Other)
  Sender: NOVARTIS
  Company Number: CA-SANDOZ-SDZ2025CA077423

PATIENT
  Age: 56 Year
  Sex: Female

DRUGS (1)
  1. EVEROLIMUS [Suspect]
     Active Substance: EVEROLIMUS
     Indication: Product used for unknown indication
     Dosage: 5 MG, QD
     Route: 048
     Dates: start: 20230421

REACTIONS (1)
  - Death [Fatal]
